FAERS Safety Report 24025503 (Version 2)
Quarter: 2024Q3

REPORT INFORMATION
  Report Type: Spontaneous
  Country: FR (occurrence: FR)
  Receive Date: 20240628
  Receipt Date: 20240710
  Transmission Date: 20241016
  Serious: No
  Sender: ROCHE
  Company Number: FR-ROCHE-3443844

PATIENT
  Age: 25 Year
  Sex: Female

DRUGS (1)
  1. ALECENSA [Suspect]
     Active Substance: ALECTINIB HYDROCHLORIDE
     Indication: Gastrointestinal carcinoma
     Dosage: 4 TABLETS IN THE MORNING AND 4 IN?THE EVENING.
     Route: 065

REACTIONS (2)
  - Off label use [Unknown]
  - Nausea [Unknown]
